FAERS Safety Report 7347713-X (Version None)
Quarter: 2011Q1

REPORT INFORMATION
  Report Type: 
  Country: None (occurrence: None)
  Receive Date: 20110311
  Receipt Date: 20110307
  Transmission Date: 20110831
  Serious: Yes (Hospitalization)
  Sender: FDA-Public Use
  Company Number: B0704263A

PATIENT
  Age: 35 Year
  Sex: Female

DRUGS (2)
  1. CLAMOXYL [Suspect]
     Indication: BRONCHITIS
     Dosage: 1G THREE TIMES PER DAY
     Route: 048
     Dates: start: 20110128, end: 20110203
  2. CIFLOX [Suspect]
     Indication: BRONCHITIS
     Dosage: 400MG TWICE PER DAY
     Route: 048
     Dates: start: 20110128, end: 20110203

REACTIONS (3)
  - RASH MACULO-PAPULAR [None]
  - EOSINOPHILIA [None]
  - PRURITUS [None]
